FAERS Safety Report 6516976-2 (Version None)
Quarter: 2009Q4

REPORT INFORMATION
  Report Type: 
  Country: None (occurrence: None)
  Receive Date: 20091223
  Receipt Date: 20091223
  Transmission Date: 20100525
  Serious: Yes (Other)
  Sender: FDA-Public Use
  Company Number: FR-WYE-G05118709

PATIENT
  Sex: Male
  Weight: 75 kg

DRUGS (7)
  1. EFFEXOR [Suspect]
     Indication: DEPRESSION
     Route: 048
     Dates: start: 19960101, end: 20091207
  2. EFFEXOR [Suspect]
     Dosage: 75 MG TOTAL DAILY
     Route: 048
     Dates: start: 20091208
  3. TEMGESIC [Suspect]
     Dosage: 1 DOSE
     Route: 042
  4. HAVLANE [Suspect]
     Indication: INSOMNIA
     Dosage: UNKNOWN AND THEN REDUCED TO 1 MG 1 TIME DAILY IN 2009
     Route: 048
     Dates: start: 20090101
  5. SPASFON [Concomitant]
     Dosage: UNKNOWN
     Dates: start: 19960101
  6. XANAX [Suspect]
     Dosage: 1.5 MG TOTAL DAILY
     Route: 048
     Dates: start: 19960101, end: 20090101
  7. XANAX [Suspect]
     Dosage: 0.75 MG TOTAL DAILY; REPORTEDLY INTERMITTENTLY
     Route: 048
     Dates: start: 20090101

REACTIONS (10)
  - ANURIA [None]
  - CONDITION AGGRAVATED [None]
  - DEPRESSION [None]
  - DYSURIA [None]
  - FAECALOMA [None]
  - INSOMNIA [None]
  - OPEN ANGLE GLAUCOMA [None]
  - POLLAKIURIA [None]
  - RENAL FAILURE [None]
  - SUBILEUS [None]
